FAERS Safety Report 20229388 (Version 1)
Quarter: 2021Q4

REPORT INFORMATION
  Report Type: Spontaneous
  Country: DE (occurrence: DE)
  Receive Date: 20211225
  Receipt Date: 20211225
  Transmission Date: 20220303
  Serious: Yes (Hospitalization)
  Sender: FDA-Public Use
  Company Number: DE-ADRED-06463-01

PATIENT
  Age: 64 Year
  Sex: Male

DRUGS (6)
  1. NEBIVOLOL [Interacting]
     Active Substance: NEBIVOLOL
     Dosage: 10 MILLIGRAM DAILY;  1-0-1-0
     Route: 048
  2. LERCANIDIPINE [Interacting]
     Active Substance: LERCANIDIPINE
     Dosage: 10 MILLIGRAM DAILY; 1-0-0-0
     Route: 048
  3. ALCOHOL [Interacting]
     Active Substance: ALCOHOL
     Route: 065
  4. BENAZEPRIL AND HYDROCHLOROTHIAZIDE [Interacting]
     Active Substance: BENAZEPRIL HYDROCHLORIDE\HYDROCHLOROTHIAZIDE
     Dosage: 2 DOSAGE FORMS DAILY; 10 MG, 2-0-0-0
     Route: 048
  5. ROSUVASTATIN [Concomitant]
     Active Substance: ROSUVASTATIN
     Dosage: 20 MILLIGRAM DAILY;  0-0-1-0
     Route: 048
  6. APIXABAN [Concomitant]
     Active Substance: APIXABAN
     Dosage: 10 MILLIGRAM DAILY; 1-0-1-0
     Route: 048

REACTIONS (5)
  - Gait disturbance [Recovering/Resolving]
  - Atrial fibrillation [Recovering/Resolving]
  - Hypotension [Recovering/Resolving]
  - Dizziness [Recovering/Resolving]
  - Alcohol interaction [Unknown]
